FAERS Safety Report 19075822 (Version 1)
Quarter: 2021Q1

REPORT INFORMATION
  Report Type: Report from Study
  Country: BE (occurrence: BE)
  Receive Date: 20210331
  Receipt Date: 20210331
  Transmission Date: 20210420
  Serious: Yes (Hospitalization, Other)
  Sender: FDA-Public Use
  Company Number: BE-ROCHE-2349253

PATIENT
  Age: 48 Year
  Sex: Male

DRUGS (15)
  1. RITUXIMAB. [Suspect]
     Active Substance: RITUXIMAB
     Indication: CHRONIC LYMPHOCYTIC LEUKAEMIA
     Dosage: CYCLE 1 DAY 1
     Route: 041
     Dates: start: 20150810, end: 20150810
  2. VENETOCLAX. [Suspect]
     Active Substance: VENETOCLAX
     Indication: CHRONIC LYMPHOCYTIC LEUKAEMIA
     Route: 048
     Dates: start: 20190620, end: 20190627
  3. L?THYROXINE [Concomitant]
     Active Substance: LEVOTHYROXINE
     Indication: HYPOTHYROIDISM
     Dates: start: 20151102
  4. VENETOCLAX. [Suspect]
     Active Substance: VENETOCLAX
     Route: 048
     Dates: start: 20190717, end: 20190723
  5. PANTOMED (BELGIUM) [Concomitant]
     Active Substance: PANTOPRAZOLE SODIUM
     Dosage: GASTRIC PREVENTION
     Dates: start: 20190620
  6. RITUXIMAB. [Suspect]
     Active Substance: RITUXIMAB
     Dosage: DAY 1 OF CYCLES 2?6
     Route: 041
     Dates: start: 20150907
  7. VENETOCLAX. [Suspect]
     Active Substance: VENETOCLAX
     Route: 048
     Dates: start: 20210126
  8. BENDAMUSTINE [Suspect]
     Active Substance: BENDAMUSTINE
     Indication: CHRONIC LYMPHOCYTIC LEUKAEMIA
     Route: 042
     Dates: start: 20150810, end: 20150810
  9. MOTILIUM [Concomitant]
     Active Substance: DOMPERIDONE
     Indication: NAUSEA
  10. VENETOCLAX. [Suspect]
     Active Substance: VENETOCLAX
     Route: 048
     Dates: start: 20190724, end: 20201221
  11. SANDOGLOBULINE [Concomitant]
     Active Substance: HUMAN IMMUNOGLOBULIN G
     Indication: HYPOGAMMAGLOBULINAEMIA
     Dates: start: 20190703
  12. ZOVIRAX [Concomitant]
     Active Substance: ACYCLOVIR
     Dosage: VIRAL INFECTION PREVENTION
     Dates: start: 20190602
  13. VENETOCLAX. [Suspect]
     Active Substance: VENETOCLAX
     Route: 048
     Dates: start: 20190628, end: 20190709
  14. EUSAPRIM [Concomitant]
     Active Substance: SULFAMETHOXAZOLE\TRIMETHOPRIM
     Dosage: BACTERIAL INFECTION PREVENTION
     Dates: start: 20190721
  15. VENETOCLAX. [Suspect]
     Active Substance: VENETOCLAX
     Route: 048
     Dates: start: 20190710, end: 20190716

REACTIONS (2)
  - COVID-19 [Recovered/Resolved]
  - Febrile neutropenia [Not Recovered/Not Resolved]

NARRATIVE: CASE EVENT DATE: 20190701
